FAERS Safety Report 7353000-6 (Version None)
Quarter: 2011Q1

REPORT INFORMATION
  Report Type: 
  Country: None (occurrence: None)
  Receive Date: 20110315
  Receipt Date: 20101119
  Transmission Date: 20110831
  Serious: Yes (Hospitalization)
  Sender: FDA-Public Use
  Company Number: A0897003A

PATIENT
  Age: 59 Year
  Sex: Male

DRUGS (1)
  1. AVANDIA [Suspect]
     Dosage: 4MG TWICE PER DAY
     Route: 048
     Dates: start: 20050201, end: 20090201

REACTIONS (3)
  - CORONARY ARTERY DISEASE [None]
  - ARTERIOSCLEROSIS [None]
  - CATHETERISATION CARDIAC [None]
